FAERS Safety Report 5411304-8 (Version None)
Quarter: 2007Q3

REPORT INFORMATION
  Report Type: 
  Country: None (occurrence: None)
  Receive Date: 20070808
  Receipt Date: 20070731
  Transmission Date: 20080115
  Serious: Yes (Other)
  Sender: FDA-Public Use
  Company Number: CHNY2007BR02737

PATIENT
  Age: 20 Year
  Sex: Female
  Weight: 51 kg

DRUGS (1)
  1. CIBALENA (NCH)(CAFFEINE CITRATE, ACETYLSALICYLIC ACID, ACETAMINOPHEN ( [Suspect]
     Dosage: 12 DF, ONCE/SINGLE,ORAL
     Route: 048
     Dates: start: 20070731, end: 20070731

REACTIONS (5)
  - CHILLS [None]
  - DRUG EXPOSURE DURING PREGNANCY [None]
  - INTENTIONAL DRUG MISUSE [None]
  - INTENTIONAL OVERDOSE [None]
  - YELLOW SKIN [None]
